FAERS Safety Report 21657550 (Version 1)
Quarter: 2022Q4

REPORT INFORMATION
  Report Type: Spontaneous
  Country: US (occurrence: US)
  Receive Date: 20221129
  Receipt Date: 20221129
  Transmission Date: 20230112
  Serious: Yes (Other)
  Sender: FDA-Public Use
  Company Number: US-PFIZER INC-PV202200110253

PATIENT
  Age: 58 Year
  Sex: Female

DRUGS (5)
  1. BEVACIZUMAB [Suspect]
     Active Substance: BEVACIZUMAB
     Indication: Endometrial cancer
     Dosage: 15 MG/KG/3 WEEKS, CYCLIC
  2. CARBOPLATIN [Concomitant]
     Active Substance: CARBOPLATIN
     Indication: Endometrial cancer
     Dosage: UNK
  3. PACLITAXEL [Concomitant]
     Active Substance: PACLITAXEL
     Indication: Endometrial cancer
     Dosage: UNK
  4. DOCETAXEL [Concomitant]
     Active Substance: DOCETAXEL
     Indication: Endometrial cancer
     Dosage: UNK
  5. DEXAMETHASONE [Concomitant]
     Active Substance: DEXAMETHASONE
     Indication: Endometrial cancer
     Dosage: UNK

REACTIONS (2)
  - Glomerulonephritis membranoproliferative [Recovering/Resolving]
  - Renal injury [Unknown]
